FAERS Safety Report 10349202 (Version 4)
Quarter: 2015Q2

REPORT INFORMATION
  Report Type: Report from Study
  Country: DE (occurrence: DE)
  Receive Date: 20140730
  Receipt Date: 20150626
  Transmission Date: 20150821
  Serious: Yes (Death, Life-Threatening)
  Sender: FDA-Public Use
  Company Number: DE-UCBSA-2014007065

PATIENT
  Age: 62 Year
  Sex: Female

DRUGS (5)
  1. LACOSAMIDE [Suspect]
     Active Substance: LACOSAMIDE
     Dosage: 8 A.M. AND 4 P.M. 200 MG
     Route: 042
     Dates: start: 20130209, end: 20130209
  2. LACOSAMIDE [Suspect]
     Active Substance: LACOSAMIDE
     Indication: SEIZURE
     Dosage: 200 MG, 2X/DAY (BID); 8 AM AND 12 AT NOON
     Route: 042
     Dates: start: 20130205, end: 20130205
  3. LACOSAMIDE [Suspect]
     Active Substance: LACOSAMIDE
     Dosage: 8 A.M., 4 P.M. AND 10 P.M. 200 MG
     Route: 042
     Dates: start: 20130206, end: 20130206
  4. LACOSAMIDE [Suspect]
     Active Substance: LACOSAMIDE
     Dosage: 8 A.M., 4 P.M. AND 12 AT NIGHT 200 MG
     Route: 042
     Dates: start: 20130207, end: 20130208
  5. LACOSAMIDE [Suspect]
     Active Substance: LACOSAMIDE
     Dosage: 12 AT NIGHT AND 8 A.M. 200 MG
     Route: 042
     Dates: start: 20130210, end: 20130210

REACTIONS (1)
  - Breast cancer [Fatal]

NARRATIVE: CASE EVENT DATE: 201302
